FAERS Safety Report 6431554-1 (Version None)
Quarter: 2009Q4

REPORT INFORMATION
  Report Type: 
  Country: None (occurrence: None)
  Receive Date: 20091106
  Receipt Date: 20091030
  Transmission Date: 20100525
  Serious: Yes (Other)
  Sender: FDA-Public Use
  Company Number: CL-GENENTECH-293065

PATIENT
  Sex: Female

DRUGS (2)
  1. TRASTUZUMAB [Suspect]
     Indication: BREAST CANCER
     Dosage: UNK
     Route: 042
     Dates: start: 20090102, end: 20090928
  2. LAPATINIB [Suspect]
     Indication: BREAST CANCER
     Dosage: 1500 MG, UNK
     Route: 048
     Dates: start: 20090508, end: 20090928

REACTIONS (1)
  - ALANINE AMINOTRANSFERASE INCREASED [None]
